FAERS Safety Report 8139876-3 (Version None)
Quarter: 2012Q1

REPORT INFORMATION
  Report Type: 
  Country: None (occurrence: None)
  Receive Date: 20120215
  Receipt Date: 20120208
  Transmission Date: 20120608
  Serious: Yes (Hospitalization)
  Sender: FDA-Public Use
  Company Number: US-VERTEX PHARMACEUTICALS INC.-AE-2012-001655

PATIENT
  Sex: Male

DRUGS (7)
  1. PEGASYS [Concomitant]
     Indication: HEPATITIS C
     Route: 058
     Dates: start: 20111205, end: 20111205
  2. AMILORIDE HYDROCHLORIDE [Concomitant]
  3. OXYCONTIN [Concomitant]
     Route: 048
  4. INCIVEK [Suspect]
     Indication: HEPATITIS C
     Route: 048
     Dates: start: 20111205, end: 20111207
  5. RIBAVIRIN [Concomitant]
     Indication: HEPATITIS C
     Dates: start: 20111205, end: 20111207
  6. LASIX [Concomitant]
  7. PANTOPRAZOLE [Concomitant]

REACTIONS (4)
  - RENAL FAILURE ACUTE [None]
  - BACTERIAL SEPSIS [None]
  - PERITONITIS BACTERIAL [None]
  - HEPATIC CIRRHOSIS [None]
